FAERS Safety Report 4360589-8 (Version None)
Quarter: 2004Q2

REPORT INFORMATION
  Report Type: 
  Country: None (occurrence: None)
  Receive Date: 20040519
  Receipt Date: 20040511
  Transmission Date: 20050107
  Serious: Yes (Life-Threatening, Disabling)
  Sender: FDA-Public Use
  Company Number: JP-BRISTOL-MYERS SQUIBB COMPANY-12585626

PATIENT
  Age: 57 Year
  Sex: Female

DRUGS (2)
  1. TAXOL [Suspect]
     Indication: OVARIAN CANCER
     Dosage: THERAPY DATES: 25-FEB-2003 TO 29-APR-2004
     Route: 042
     Dates: start: 20040429, end: 20040429
  2. PARAPLATIN [Suspect]
     Indication: OVARIAN CANCER
     Dosage: THERAPY DATES: 25-FEB-2003 TO 29-APR-2004
     Route: 042
     Dates: start: 20040429, end: 20040429

REACTIONS (1)
  - CEREBRAL INFARCTION [None]
